FAERS Safety Report 16676600 (Version 1)
Quarter: 2019Q3

REPORT INFORMATION
  Report Type: Spontaneous
  Country: NL (occurrence: NL)
  Receive Date: 20190807
  Receipt Date: 20190807
  Transmission Date: 20191004
  Serious: Yes (Hospitalization)
  Sender: FDA-Public Use
  Company Number: NL-AUROBINDO-AUR-APL-2019-044026

PATIENT

DRUGS (7)
  1. CLOZAPINE. [Suspect]
     Active Substance: CLOZAPINE
     Indication: PSYCHOTIC DISORDER
     Dosage: 175 MILLIGRAM, ONCE A DAY
     Route: 065
  2. ARIPIPRAZOLE. [Suspect]
     Active Substance: ARIPIPRAZOLE
     Indication: PSYCHOTIC DISORDER
     Dosage: 10 MILLIGRAM
     Route: 065
     Dates: start: 201502
  3. CLOZAPINE. [Suspect]
     Active Substance: CLOZAPINE
     Dosage: 100 MILLIGRAM, ONCE A DAY
     Route: 065
  4. VENLAFAXINE [Interacting]
     Active Substance: VENLAFAXINE HYDROCHLORIDE
     Indication: MAJOR DEPRESSION
     Dosage: 37.5 MILLIGRAM, ONCE A DAY
     Route: 065
  5. CLOMIPRAMINE [Interacting]
     Active Substance: CLOMIPRAMINE
     Indication: PSYCHOTIC DISORDER
     Dosage: 75 MILLIGRAM
     Route: 065
  6. CLOZAPINE. [Suspect]
     Active Substance: CLOZAPINE
     Dosage: 150 MILLIGRAM, ONCE A DAY
     Route: 065
     Dates: start: 201412
  7. HALOPERIDOL. [Suspect]
     Active Substance: HALOPERIDOL
     Indication: PSYCHOTIC DISORDER
     Dosage: 10 MILLIGRAM, DAILY
     Route: 065
     Dates: start: 201501

REACTIONS (3)
  - Drug interaction [Unknown]
  - Drug level increased [Recovered/Resolved]
  - Drug ineffective [Unknown]
